FAERS Safety Report 9732432 (Version 2)
Quarter: 2013Q4

REPORT INFORMATION
  Report Type: Spontaneous
  Country: PL (occurrence: PL)
  Receive Date: 20131204
  Receipt Date: 20131211
  Transmission Date: 20140711
  Serious: Yes (Other)
  Sender: FDA-Public Use
  Company Number: PHHY2013PL136501

PATIENT
  Age: 10 Year
  Sex: Female

DRUGS (5)
  1. SOMATROPIN [Suspect]
     Indication: GROWTH RETARDATION
     Dosage: 0.03 MG/KG, UNK
  2. HYDROCORTISONE [Concomitant]
     Indication: HORMONE REPLACEMENT THERAPY
     Dosage: 10-15 MG
  3. EUTHYROX [Concomitant]
     Indication: HORMONE REPLACEMENT THERAPY
     Dosage: 75 UG/DAY
  4. MINIRIN//DESMOPRESSIN [Concomitant]
     Indication: HORMONE REPLACEMENT THERAPY
  5. LAMITRIN [Concomitant]
     Indication: CONVULSION

REACTIONS (3)
  - Somnolence [Recovered/Resolved]
  - Apnoea [Recovered/Resolved]
  - Tonsillar hypertrophy [Recovered/Resolved]
